FAERS Safety Report 7024962-1 (Version None)
Quarter: 2010Q4

REPORT INFORMATION
  Report Type: 
  Country: None (occurrence: None)
  Receive Date: 20101001
  Receipt Date: 20100721
  Transmission Date: 20110411
  Serious: No
  Sender: FDA-Public Use
  Company Number: US-NOVEN-10US001354

PATIENT
  Sex: Female

DRUGS (2)
  1. FENTANYL [Suspect]
     Indication: SPINAL OSTEOARTHRITIS
     Dosage: 100 UG, EVERY HOUR
     Route: 062
     Dates: start: 20100501
  2. UNKNOWN [Concomitant]

REACTIONS (4)
  - APPLICATION SITE PAIN [None]
  - INADEQUATE ANALGESIA [None]
  - MIGRAINE [None]
  - PRODUCT QUALITY ISSUE [None]
